FAERS Safety Report 6530252-3 (Version None)
Quarter: 2010Q1

REPORT INFORMATION
  Report Type: 
  Country: None (occurrence: None)
  Receive Date: 20100107
  Receipt Date: 20091228
  Transmission Date: 20100710
  Serious: Yes (Hospitalization)
  Sender: FDA-Public Use
  Company Number: JP-PFIZER INC-2009312481

PATIENT
  Age: 55 Year
  Sex: Male
  Weight: 50.2 kg

DRUGS (10)
  1. SUNITINIB MALATE [Suspect]
     Indication: COLORECTAL CANCER
     Dosage: 25 MG, 1X/DAY
     Route: 048
     Dates: start: 20090513, end: 20091216
  2. OXALIPLATIN [Suspect]
     Indication: COLORECTAL CANCER
     Dosage: UNK
     Route: 042
     Dates: start: 20090513, end: 20091028
  3. FLUOROURACIL [Suspect]
     Indication: COLORECTAL CANCER
     Dosage: 471 MG, DAILY, EVERY 2 WEEKS
     Route: 042
     Dates: start: 20090513, end: 20091209
  4. FLUOROURACIL [Suspect]
     Dosage: 2826 MG, DAILY, EVERY 2 WEEKS
     Route: 042
     Dates: start: 20090513, end: 20091211
  5. CALCIUM LEVOFOLINATE [Suspect]
     Indication: COLORECTAL CANCER
     Dosage: 314 MG, DAILY, EVERY 2 WEEKS
     Route: 042
     Dates: start: 20090513, end: 20091209
  6. PARIET [Concomitant]
     Indication: PROPHYLAXIS
     Dosage: 10 MG, 1X/DAY
     Route: 048
     Dates: start: 20090513, end: 20091216
  7. DOMPERIDONE [Concomitant]
     Indication: NAUSEA
     Dosage: 10 MG, AS NEEDED
     Route: 048
     Dates: start: 20090515, end: 20091216
  8. NOVAMIN [Concomitant]
     Indication: NAUSEA
     Dosage: UNKNOWN DOSE, AS NEEDED
     Route: 048
     Dates: start: 20090516, end: 20091216
  9. DECADRON [Concomitant]
     Dosage: 8 MG, UNK
     Route: 042
     Dates: start: 20091209, end: 20091209
  10. KYTRIL [Concomitant]
     Dosage: 3 MG, UNK
     Route: 042
     Dates: start: 20091209, end: 20091209

REACTIONS (1)
  - INTESTINAL OBSTRUCTION [None]
